FAERS Safety Report 11192777 (Version 1)
Quarter: 2015Q2

REPORT INFORMATION
  Report Type: Spontaneous
  Country: US (occurrence: US)
  Receive Date: 20150616
  Receipt Date: 20150616
  Transmission Date: 20150821
  Serious: Yes (Other)
  Sender: FDA-Public Use
  Company Number: US-TEVA-569846USA

PATIENT
  Sex: Female

DRUGS (1)
  1. COPAXONE [Suspect]
     Active Substance: GLATIRAMER ACETATE
     Indication: MULTIPLE SCLEROSIS
     Dosage: UNKNOWN FORM STRENGTH

REACTIONS (8)
  - Memory impairment [Unknown]
  - Malaise [Unknown]
  - Injection site swelling [Unknown]
  - Hypersensitivity [Unknown]
  - Swelling [Unknown]
  - Injection site reaction [Unknown]
  - Weight increased [Unknown]
  - Injection site discolouration [Unknown]
